FAERS Safety Report 13989347 (Version 1)
Quarter: 2017Q3

REPORT INFORMATION
  Report Type: Report from Study
  Country: US (occurrence: US)
  Receive Date: 20170920
  Receipt Date: 20170920
  Transmission Date: 20171128
  Serious: Yes (Hospitalization, Other)
  Sender: FDA-Public Use
  Company Number: US-GILEAD-2017-0294036

PATIENT
  Age: 45 Year
  Sex: Female

DRUGS (12)
  1. SPIRONOLACTONE. [Concomitant]
     Active Substance: SPIRONOLACTONE
  2. PLAVIX [Concomitant]
     Active Substance: CLOPIDOGREL BISULFATE
  3. CLONAZEPAM. [Concomitant]
     Active Substance: CLONAZEPAM
  4. SILDENAFIL. [Concomitant]
     Active Substance: SILDENAFIL
  5. OXCARBAZEPIN [Concomitant]
     Active Substance: OXCARBAZEPINE
  6. OXYCODONE [Concomitant]
     Active Substance: OXYCODONE
  7. VENTOLIN HFA [Concomitant]
     Active Substance: ALBUTEROL SULFATE
  8. REMODULIN [Suspect]
     Active Substance: TREPROSTINIL
     Indication: PULMONARY HYPERTENSION
     Route: 065
     Dates: start: 2017
  9. ONDANSETRON [Concomitant]
     Active Substance: ONDANSETRON
  10. CARBAMAZEPIN [Concomitant]
     Active Substance: CARBAMAZEPINE
  11. AMBRISENTAN [Suspect]
     Active Substance: AMBRISENTAN
     Indication: HEART DISEASE CONGENITAL
     Dosage: 10 MG, QD
     Route: 065
     Dates: start: 20170110
  12. WARFARIN [Concomitant]
     Active Substance: WARFARIN

REACTIONS (3)
  - Off label use [Not Recovered/Not Resolved]
  - Headache [Not Recovered/Not Resolved]
  - Central venous catheterisation [Recovered/Resolved]

NARRATIVE: CASE EVENT DATE: 20170911
